FAERS Safety Report 6921158-6 (Version None)
Quarter: 2010Q3

REPORT INFORMATION
  Report Type: 
  Country: None (occurrence: None)
  Receive Date: 20100812
  Receipt Date: 20100608
  Transmission Date: 20110219
  Serious: Yes (Other)
  Sender: FDA-Public Use
  Company Number: SE-ABBOTT-10P-150-0651448-00

PATIENT
  Age: 33 Year
  Sex: Female

DRUGS (3)
  1. PROCREN DEPOT 3.75 MG [Suspect]
     Indication: ENDOMETRIOSIS
     Dates: end: 20090801
  2. IBRUPROFEN [Suspect]
     Indication: PRODUCT USED FOR UNKNOWN INDICATION
     Dates: end: 20090820
  3. ALVEDON FORTE [Concomitant]
     Indication: PRODUCT USED FOR UNKNOWN INDICATION
     Dosage: DOSE UNKNOWN

REACTIONS (2)
  - CAESAREAN SECTION [None]
  - PELVIC PAIN [None]
